FAERS Safety Report 21981842 (Version 1)
Quarter: 2023Q1

REPORT INFORMATION
  Report Type: Spontaneous
  Country: US (occurrence: US)
  Receive Date: 20230212
  Receipt Date: 20230212
  Transmission Date: 20230418
  Serious: Yes (Death, Hospitalization, Other)
  Sender: FDA-Public Use
  Company Number: US-BRISTOL-MYERS SQUIBB COMPANY-2023-016385

PATIENT
  Age: 85 Year
  Sex: Male
  Weight: 72.57 kg

DRUGS (1)
  1. REVLIMID [Suspect]
     Active Substance: LENALIDOMIDE
     Indication: Plasma cell myeloma
     Dosage: FREQUENCY: 21 DAYS ON, 7 DAYS OFF
     Route: 048
     Dates: start: 202210

REACTIONS (11)
  - Fall [Fatal]
  - Diarrhoea [Fatal]
  - Clostridium test positive [Fatal]
  - Hypotension [Fatal]
  - Tachycardia [Fatal]
  - Respiratory rate increased [Fatal]
  - Oxygen saturation decreased [Fatal]
  - Haemoglobin decreased [Fatal]
  - Platelet count decreased [Fatal]
  - Electrocardiogram ST segment depression [Fatal]
  - Renal impairment [Fatal]
